FAERS Safety Report 7320953-1 (Version None)
Quarter: 2011Q1

REPORT INFORMATION
  Report Type: 
  Country: None (occurrence: None)
  Receive Date: 20110228
  Receipt Date: 20110223
  Transmission Date: 20110831
  Serious: Yes (Hospitalization)
  Sender: FDA-Public Use
  Company Number: CO-ROCHE-761572

PATIENT
  Sex: Female

DRUGS (5)
  1. CELLCEPT [Suspect]
     Indication: LIVER TRANSPLANT
     Dosage: FREQUENCY: QD
     Route: 048
     Dates: start: 19600609
  2. VALGANCICLOVIR [Concomitant]
     Dosage: FREQUENCY: QD
     Route: 048
  3. PREDNISOLONE [Concomitant]
     Dosage: FREQUENCY: QD
     Route: 048
  4. CALCITRIOL [Concomitant]
     Dosage: FRQUENCY: QD
     Route: 048
  5. CALCIUM CARBONATE [Concomitant]
     Dosage: FREQUENCY: QD
     Route: 048

REACTIONS (1)
  - TRANSPLANT REJECTION [None]
